FAERS Safety Report 9256922 (Version 2)
Quarter: 2013Q4

REPORT INFORMATION
  Report Type: Spontaneous
  Country: US (occurrence: US)
  Receive Date: 20130426
  Receipt Date: 20131010
  Transmission Date: 20140711
  Serious: No
  Sender: FDA-Public Use
  Company Number: US-ASTRAZENECA-2013SE27790

PATIENT
  Sex: Female

DRUGS (9)
  1. NEXIUM [Suspect]
     Dosage: THREE TIMES A DAY
     Route: 048
  2. NEXIUM [Suspect]
     Route: 048
     Dates: start: 20081027
  3. KLONOPIN [Concomitant]
     Dates: start: 20040206
  4. HUMULIN [Concomitant]
     Dates: start: 20040206
  5. VIOXX [Concomitant]
     Dates: start: 20040206
  6. ALPRAZOLAM [Concomitant]
     Dates: start: 20090102
  7. HYDROCODONE [Concomitant]
     Dosage: 7.5/325 MG
     Dates: start: 20090210
  8. PREMARIN [Concomitant]
     Dates: start: 20090210
  9. AZITHROMYCIN [Concomitant]
     Dates: start: 20090210

REACTIONS (3)
  - Osteoporosis [Unknown]
  - Bone disorder [Unknown]
  - Multiple fractures [Unknown]
